FAERS Safety Report 7540885-3 (Version None)
Quarter: 2011Q2

REPORT INFORMATION
  Report Type: 
  Country: None (occurrence: None)
  Receive Date: 20110610
  Receipt Date: 20110606
  Transmission Date: 20111010
  Serious: Yes (Hospitalization)
  Sender: FDA-Public Use
  Company Number: US-SANOFI-AVENTIS-2011SA036156

PATIENT
  Age: 85 Year
  Sex: Female

DRUGS (16)
  1. OXYCODONE HCL AND ACETAMINOPHEN [Concomitant]
     Dates: start: 20110301, end: 20110510
  2. AMLODIPINE BESYLATE [Concomitant]
  3. ARIXTRA [Concomitant]
     Dates: start: 20110301, end: 20110401
  4. LASIX [Concomitant]
  5. PLAVIX [Suspect]
     Route: 048
     Dates: start: 20050101, end: 20110326
  6. TEMAZEPAM [Concomitant]
     Dates: start: 20110301, end: 20110510
  7. OSCAL [Concomitant]
  8. STOOL SOFTENER [Concomitant]
  9. MULTI-VITAMINS [Concomitant]
  10. PLAVIX [Suspect]
     Route: 048
     Dates: start: 20110329
  11. FERROUS SULFATE TAB [Concomitant]
  12. ALPRAZOLAM [Concomitant]
     Dates: start: 20110301, end: 20110510
  13. POTASSIUM CHLORIDE [Concomitant]
  14. CYANOCOBALAMIN [Concomitant]
     Route: 030
  15. ZOCOR [Concomitant]
  16. RANITIDINE [Concomitant]

REACTIONS (4)
  - CONTUSION [None]
  - HIP FRACTURE [None]
  - FALL [None]
  - MEMORY IMPAIRMENT [None]
